FAERS Safety Report 7559052-2 (Version None)
Quarter: 2011Q2

REPORT INFORMATION
  Report Type: 
  Country: None (occurrence: None)
  Receive Date: 20110621
  Receipt Date: 20110610
  Transmission Date: 20111010
  Serious: Yes (Life-Threatening, Hospitalization)
  Sender: FDA-Public Use
  Company Number: FR-KINGPHARMUSA00001-K201100717

PATIENT
  Age: 79 Year
  Sex: Female

DRUGS (4)
  1. VOLTAREN [Suspect]
     Dosage: 75 MG, BID
     Route: 048
     Dates: start: 20110421, end: 20110427
  2. IMERON [Suspect]
     Indication: COMPUTERISED TOMOGRAM THORAX
     Dosage: 49000 MG, SINGLE
     Route: 042
     Dates: start: 20110420, end: 20110420
  3. MIDAZOLAM HCL [Suspect]
     Indication: ECHOCARDIOGRAM
     Dosage: 3 MG, SINGLE
     Route: 042
     Dates: start: 20110420, end: 20110420
  4. ALTACE [Suspect]
     Dosage: 2.5 MG, BID
     Route: 048
     Dates: start: 20091101, end: 20110426

REACTIONS (3)
  - RENAL FAILURE ACUTE [None]
  - PERICARDIAL EFFUSION [None]
  - BLOOD CREATININE INCREASED [None]
